FAERS Safety Report 21675827 (Version 1)
Quarter: 2022Q4

REPORT INFORMATION
  Report Type: Spontaneous
  Country: US (occurrence: None)
  Receive Date: 20221202
  Receipt Date: 20221202
  Transmission Date: 20230113
  Serious: Yes (Hospitalization, Other)
  Sender: FDA-Public Use
  Company Number: None

PATIENT
  Age: 60 Year
  Sex: Female
  Weight: 65.25 kg

DRUGS (1)
  1. SUBUTEX [Suspect]
     Active Substance: BUPRENORPHINE HYDROCHLORIDE
     Indication: Pain
     Dosage: OTHER QUANTITY : 1 TABLET(S);?FREQUENCY : 3 TIMES A DAY;?
     Route: 060
     Dates: start: 20111101, end: 20221201

REACTIONS (12)
  - Drug dependence [None]
  - Infection [None]
  - Pain [None]
  - Tooth loss [None]
  - Tooth fracture [None]
  - Tooth fracture [None]
  - Loose tooth [None]
  - Bone loss [None]
  - Self esteem decreased [None]
  - Loss of personal independence in daily activities [None]
  - Eating disorder [None]
  - Speech disorder [None]

NARRATIVE: CASE EVENT DATE: 20221202
